FAERS Safety Report 15395006 (Version 3)
Quarter: 2018Q3

REPORT INFORMATION
  Report Type: Spontaneous
  Country: US (occurrence: US)
  Receive Date: 20180918
  Receipt Date: 20180925
  Transmission Date: 20181010
  Serious: Yes (Other)
  Sender: FDA-Public Use
  Company Number: US-CIPLA LTD.-2018US21217

PATIENT

DRUGS (5)
  1. GABAPENTIN. [Suspect]
     Active Substance: GABAPENTIN
     Indication: PAIN IN EXTREMITY
     Dosage: 300 MG, TID
     Route: 048
     Dates: start: 20180906
  2. METOPROLOL. [Concomitant]
     Active Substance: METOPROLOL
     Indication: HYPERTENSION
     Dosage: 50 MG, QD
     Route: 065
  3. LEVEMIR [Concomitant]
     Active Substance: INSULIN DETEMIR
     Indication: DIABETES MELLITUS
     Dosage: UNK, BID
     Route: 065
  4. RANITIDINE. [Concomitant]
     Active Substance: RANITIDINE
     Indication: BLOOD CHOLESTEROL INCREASED
     Dosage: 300 MG, EVERY MORNING
     Route: 065
     Dates: start: 2011
  5. GABAPENTIN. [Suspect]
     Active Substance: GABAPENTIN
     Indication: GOUT

REACTIONS (6)
  - Physical assault [Not Recovered/Not Resolved]
  - Illusion [Not Recovered/Not Resolved]
  - Off label use [Unknown]
  - Panic reaction [Not Recovered/Not Resolved]
  - Negative thoughts [Not Recovered/Not Resolved]
  - Homicidal ideation [Not Recovered/Not Resolved]

NARRATIVE: CASE EVENT DATE: 20180906
